FAERS Safety Report 23540414 (Version 1)
Quarter: 2024Q1

REPORT INFORMATION
  Report Type: Spontaneous
  Country: US (occurrence: US)
  Receive Date: 20240219
  Receipt Date: 20240219
  Transmission Date: 20240409
  Serious: No
  Sender: FDA-Public Use
  Company Number: US-Stemline Therapeutics, Inc.-2023ST004706

PATIENT
  Age: 74 Year
  Sex: Female

DRUGS (11)
  1. ORSERDU [Suspect]
     Active Substance: ELACESTRANT
     Indication: Product used for unknown indication
     Dosage: 1 TABLET, ONCE A DAY
     Route: 048
     Dates: start: 20230824
  2. VITAMIN D [Concomitant]
     Active Substance: VITAMIN D NOS
     Indication: Product used for unknown indication
     Route: 048
  3. TYLENOL EXTRA STRENGTH [Concomitant]
     Active Substance: ACETAMINOPHEN
     Indication: Product used for unknown indication
     Route: 048
  4. IBUPROFEN [Concomitant]
     Active Substance: IBUPROFEN
     Indication: Product used for unknown indication
     Route: 048
  5. MAGNESIUM OXIDE [Concomitant]
     Active Substance: MAGNESIUM OXIDE
     Indication: Product used for unknown indication
     Route: 048
  6. ONDANSETRON HYDROCHLORIDE [Concomitant]
     Active Substance: ONDANSETRON HYDROCHLORIDE
     Indication: Product used for unknown indication
     Route: 048
  7. MELATONIN [Concomitant]
     Active Substance: MELATONIN
     Indication: Product used for unknown indication
     Route: 048
  8. ELOCON [Concomitant]
     Active Substance: MOMETASONE FUROATE
     Indication: Product used for unknown indication
     Route: 061
  9. VALIUM [Concomitant]
     Active Substance: DIAZEPAM
     Indication: Product used for unknown indication
     Route: 048
  10. IPRATROPIUM BROMIDE [Concomitant]
     Active Substance: IPRATROPIUM BROMIDE\IPRATROPIUM BROMIDE ANHYDROUS
     Indication: Product used for unknown indication
     Route: 045
  11. TRAMADOL HCL [Concomitant]
     Active Substance: TRAMADOL HYDROCHLORIDE
     Indication: Product used for unknown indication
     Route: 048

REACTIONS (1)
  - Vulvovaginal burning sensation [Not Recovered/Not Resolved]

NARRATIVE: CASE EVENT DATE: 20231101
